FAERS Safety Report 18916569 (Version 1)
Quarter: 2021Q1

REPORT INFORMATION
  Report Type: Spontaneous
  Country: FR (occurrence: FR)
  Receive Date: 20210219
  Receipt Date: 20210219
  Transmission Date: 20210420
  Serious: Yes (Life-Threatening)
  Sender: FDA-Public Use
  Company Number: FR-ABBVIE-21K-056-3779576-00

PATIENT
  Age: 61 Year
  Sex: Male
  Weight: 88 kg

DRUGS (1)
  1. KALETRA [Suspect]
     Active Substance: LOPINAVIR\RITONAVIR
     Indication: CORONAVIRUS INFECTION
     Dosage: KALETRA 100 MG/25 MG, COATED TABLET
     Route: 048
     Dates: start: 20200410, end: 20200525

REACTIONS (2)
  - Off label use [Unknown]
  - Pulmonary embolism [Recovered/Resolved]

NARRATIVE: CASE EVENT DATE: 20200427
